FAERS Safety Report 15530333 (Version 1)
Quarter: 2018Q4

REPORT INFORMATION
  Report Type: Spontaneous
  Country: DE (occurrence: DE)
  Receive Date: 20181020
  Receipt Date: 20181020
  Transmission Date: 20190205
  Serious: Yes (Hospitalization, Other)
  Sender: FDA-Public Use
  Company Number: DE-TORRENT-00011530

PATIENT
  Sex: Female

DRUGS (1)
  1. VALSARTAN. [Suspect]
     Active Substance: VALSARTAN
     Indication: PRODUCT USED FOR UNKNOWN INDICATION
     Dosage: UNKNOWN
     Dates: start: 2015

REACTIONS (11)
  - Drug intolerance [Unknown]
  - Anaphylactic shock [Unknown]
  - Hypertension [Unknown]
  - Contusion [Unknown]
  - Diarrhoea [Unknown]
  - Gastritis [Unknown]
  - Dyspnoea [Unknown]
  - Abdominal discomfort [Unknown]
  - Dizziness [Unknown]
  - Quality of life decreased [Unknown]
  - Nausea [Unknown]

NARRATIVE: CASE EVENT DATE: 201802
